FAERS Safety Report 15201604 (Version 1)
Quarter: 2018Q3

REPORT INFORMATION
  Report Type: Spontaneous
  Country: US (occurrence: US)
  Receive Date: 20180627
  Receipt Date: 20180627
  Transmission Date: 20181010
  Serious: Yes (Hospitalization)
  Sender: FDA-Public Use
  Company Number: None

PATIENT
  Age: 59 Year
  Sex: Male
  Weight: 97.5 kg

DRUGS (1)
  1. TRULICITY [Suspect]
     Active Substance: DULAGLUTIDE
     Indication: DIABETES MELLITUS
     Route: 058

REACTIONS (9)
  - Eructation [None]
  - Nausea [None]
  - Chest pain [None]
  - Decreased appetite [None]
  - Constipation [None]
  - Abdominal distension [None]
  - Hyperchlorhydria [None]
  - Chest discomfort [None]
  - Abdominal pain [None]

NARRATIVE: CASE EVENT DATE: 20180626
